FAERS Safety Report 12282977 (Version 2)
Quarter: 2016Q3

REPORT INFORMATION
  Report Type: Spontaneous
  Country: FR (occurrence: FR)
  Receive Date: 20160419
  Receipt Date: 20160708
  Transmission Date: 20161109
  Serious: Yes (Hospitalization, Other)
  Sender: FDA-Public Use
  Company Number: FR-PFIZER INC-2016214958

PATIENT
  Age: 83 Year
  Sex: Female

DRUGS (10)
  1. OFLOCET /00731801/ [Suspect]
     Active Substance: OFLOXACIN
     Indication: URINARY TRACT INFECTION
     Dosage: 200 MG, UNK
     Route: 048
     Dates: start: 20160401, end: 20160403
  2. ESOMEPRAZOLE [Concomitant]
     Active Substance: ESOMEPRAZOLE
     Dosage: UNK
  3. METFORMIN [Concomitant]
     Active Substance: METFORMIN HYDROCHLORIDE
     Dosage: UNK
  4. LECTIL [Concomitant]
     Active Substance: BETAHISTINE HYDROCHLORIDE
     Dosage: 16 MG, UNK
  5. DUROGESIC [Concomitant]
     Active Substance: FENTANYL
     Dosage: 25 UG/H (4.2 MG/10.5 CM2)
     Route: 062
  6. MICARDIS [Concomitant]
     Active Substance: TELMISARTAN
     Dosage: 40 MG, UNK
  7. SEROPLEX [Concomitant]
     Active Substance: ESCITALOPRAM OXALATE
     Dosage: 10 MG, UNK
  8. ALLOPURINOL. [Concomitant]
     Active Substance: ALLOPURINOL
     Dosage: UNK
  9. LACTULOSE. [Concomitant]
     Active Substance: LACTULOSE
     Dosage: 1 DF, 1X/DAY
     Route: 048
     Dates: end: 20160403
  10. XANAX [Suspect]
     Active Substance: ALPRAZOLAM
     Dosage: 0.25 MG, 1X/DAY
     Route: 048
     Dates: end: 20160403

REACTIONS (4)
  - Fall [Recovered/Resolved]
  - Delirium [Recovered/Resolved]
  - Blood creatine phosphokinase increased [Recovering/Resolving]
  - Klebsiella infection [Unknown]

NARRATIVE: CASE EVENT DATE: 20160403
